FAERS Safety Report 11726735 (Version 6)
Quarter: 2016Q2

REPORT INFORMATION
  Report Type: Report from Study
  Country: BR (occurrence: BR)
  Receive Date: 20151112
  Receipt Date: 20160406
  Transmission Date: 20160815
  Serious: Yes (Hospitalization, Other)
  Sender: FDA-Public Use
  Company Number: PHHY2015BR147086

PATIENT
  Age: 6 Year
  Sex: Female
  Weight: 20 kg

DRUGS (9)
  1. RANITIDINE. [Concomitant]
     Active Substance: RANITIDINE
     Indication: RHEUMATIC DISORDER
     Dosage: 7.5 ML, QD
     Route: 048
  2. PREDNISOLONE. [Concomitant]
     Active Substance: PREDNISOLONE
     Indication: RHEUMATIC DISORDER
     Dosage: 1.5 DF, QD
     Route: 048
  3. ILARIS [Suspect]
     Active Substance: CANAKINUMAB
     Indication: JUVENILE IDIOPATHIC ARTHRITIS
  4. METHOTREXATE [Concomitant]
     Active Substance: METHOTREXATE
     Indication: RHEUMATIC DISORDER
     Dosage: 17 ML, QW
     Route: 048
  5. ADDERA D3 [Concomitant]
     Active Substance: CHOLECALCIFEROL
     Indication: RHEUMATIC DISORDER
     Dosage: 4 DRP, QD
     Route: 048
  6. PARACETAMOL [Concomitant]
     Active Substance: ACETAMINOPHEN
     Indication: RHEUMATIC DISORDER
     Dosage: 20 DRP, Q6H (IN CASE OF PAIN)
     Route: 048
  7. IBUPROFEN. [Concomitant]
     Active Substance: IBUPROFEN
     Indication: RHEUMATIC DISORDER
     Dosage: 22 DRP, EVERY 8 HOURS
     Route: 048
  8. ILARIS [Suspect]
     Active Substance: CANAKINUMAB
     Indication: RHEUMATIC DISORDER
     Dosage: 150 MG, QMO
     Route: 058
  9. FOLIC ACID. [Concomitant]
     Active Substance: FOLIC ACID
     Indication: RHEUMATIC DISORDER
     Dosage: 1 DF, QW3
     Route: 048

REACTIONS (11)
  - Arthralgia [Unknown]
  - Joint injury [Unknown]
  - Rheumatic fever [Unknown]
  - Fatigue [Unknown]
  - Pain in extremity [Unknown]
  - Furuncle [Recovering/Resolving]
  - Sinusitis [Unknown]
  - Malaise [Unknown]
  - Pyrexia [Unknown]
  - Decreased immune responsiveness [Unknown]
  - Ear pain [Unknown]

NARRATIVE: CASE EVENT DATE: 20151104
